FAERS Safety Report 6343845-3 (Version None)
Quarter: 2009Q3

REPORT INFORMATION
  Report Type: 
  Country: None (occurrence: None)
  Receive Date: 20090908
  Receipt Date: 20090902
  Transmission Date: 20100115
  Serious: Yes (Other)
  Sender: FDA-Public Use
  Company Number: PHHO2009DE07525

PATIENT
  Sex: Male
  Weight: 106 kg

DRUGS (5)
  1. HYDROCHLOROTHIAZIDE T08766+TAB [Suspect]
     Indication: HYPERTENSION
     Dosage: 12.5
     Route: 048
     Dates: start: 20090508, end: 20090515
  2. HYDROCHLOROTHIAZIDE T08766+TAB [Suspect]
     Dosage: 25 MG
     Route: 048
     Dates: start: 20090516, end: 20090603
  3. ALISKIREN ALI+TAB+HT [Suspect]
     Indication: HYPERTENSION
     Dosage: 300 MG
     Route: 048
     Dates: start: 20090604, end: 20090611
  4. CANDESARTAN COMP-CAN+ [Suspect]
     Indication: HYPERTENSION
     Dosage: 16 MG
     Route: 048
     Dates: start: 20090508, end: 20090515
  5. CANDESARTAN COMP-CAN+ [Suspect]
     Dosage: 32 MG
     Route: 048
     Dates: start: 20090516, end: 20090603

REACTIONS (2)
  - BLOOD GLUCOSE INCREASED [None]
  - DIABETES MELLITUS [None]
